FAERS Safety Report 4874354-6 (Version None)
Quarter: 2006Q1

REPORT INFORMATION
  Report Type: 
  Country: None (occurrence: None)
  Receive Date: 20060104
  Receipt Date: 20051222
  Transmission Date: 20060701
  Serious: Yes (Hospitalization, Other)
  Sender: FDA-Public Use
  Company Number: 2005172689

PATIENT
  Sex: Male
  Weight: 104.3273 kg

DRUGS (12)
  1. VIAGRA [Suspect]
     Indication: ERECTILE DYSFUNCTION
     Dosage: 100 MG, AS NECESSARY)
     Dates: start: 20020101, end: 20030101
  2. ISOSORBIDE (ISOSORBIDE) [Concomitant]
  3. NITROQUICK (GLYCERYL TRINITRATE) [Concomitant]
  4. PLAVIX [Concomitant]
  5. VYTORIN [Concomitant]
  6. ACCUPRIL [Concomitant]
  7. TOPROL-XL [Concomitant]
  8. LIPITOR [Concomitant]
  9. GEMFIBROZIL [Concomitant]
  10. AMBIEN [Concomitant]
  11. ANTIDEPRESSANTS (ANTIDEPRESSANTS) [Concomitant]
  12. ANTI-DIABETES (ANTI-DIABETES) [Concomitant]

REACTIONS (5)
  - CHEST PAIN [None]
  - ENURESIS [None]
  - MYOCARDIAL INFARCTION [None]
  - POLYURIA [None]
  - STENT PLACEMENT [None]
